FAERS Safety Report 12480923 (Version 1)
Quarter: 2016Q2

REPORT INFORMATION
  Report Type: Report from Study
  Country: CA (occurrence: CA)
  Receive Date: 20160620
  Receipt Date: 20160620
  Transmission Date: 20160815
  Serious: Yes (Other)
  Sender: FDA-Public Use
  Company Number: CA-JNJFOC-20160613082

PATIENT
  Sex: Female
  Weight: 66.5 kg

DRUGS (1)
  1. REMICADE [Suspect]
     Active Substance: INFLIXIMAB
     Indication: CROHN^S DISEASE
     Route: 042
     Dates: start: 20140627

REACTIONS (2)
  - Basal cell carcinoma [Not Recovered/Not Resolved]
  - Fungal skin infection [Not Recovered/Not Resolved]
